FAERS Safety Report 21204045 (Version 1)
Quarter: 2022Q3

REPORT INFORMATION
  Report Type: Spontaneous
  Country: US (occurrence: US)
  Receive Date: 20220811
  Receipt Date: 20220811
  Transmission Date: 20221027
  Serious: Yes (Hospitalization)
  Sender: FDA-Public Use
  Company Number: US-STRIDES ARCOLAB LIMITED-2022SP010112

PATIENT
  Age: 40 Year
  Sex: Male

DRUGS (6)
  1. CYCLOSPORINE [Suspect]
     Active Substance: CYCLOSPORINE
     Indication: Lung transplant
     Dosage: UNK
     Route: 065
  2. CYCLOSPORINE [Suspect]
     Active Substance: CYCLOSPORINE
     Indication: Stem cell transplant
  3. EVEROLIMUS [Suspect]
     Active Substance: EVEROLIMUS
     Indication: Lung transplant
     Dosage: UNK
     Route: 065
  4. EVEROLIMUS [Suspect]
     Active Substance: EVEROLIMUS
     Indication: Stem cell transplant
  5. POSACONAZOLE [Concomitant]
     Active Substance: POSACONAZOLE
     Indication: Product used for unknown indication
     Dosage: UNK
     Route: 065
  6. DAPSONE [Concomitant]
     Active Substance: DAPSONE
     Indication: Product used for unknown indication
     Dosage: UNK
     Route: 065

REACTIONS (5)
  - Embolic stroke [Recovered/Resolved]
  - Brain oedema [Recovered/Resolved]
  - Ischaemic stroke [Recovered/Resolved]
  - Cerebrovascular accident [Recovered/Resolved]
  - Cerebral haemorrhage [Recovered/Resolved]
